FAERS Safety Report 6084263-5 (Version None)
Quarter: 2009Q1

REPORT INFORMATION
  Report Type: 
  Country: None (occurrence: None)
  Receive Date: 20090219
  Receipt Date: 20090209
  Transmission Date: 20090719
  Serious: Yes (Hospitalization)
  Sender: FDA-Public Use
  Company Number: PHHY2009GB01541

PATIENT
  Sex: Male

DRUGS (8)
  1. CLOZARIL [Suspect]
     Indication: SCHIZOPHRENIA
     Dosage: UNK
     Dates: start: 20060704
  2. CLOZARIL [Suspect]
     Dosage: UNK
  3. THIAMINE HCL [Concomitant]
     Indication: ALCOHOL ABUSE
     Dosage: 100 MG, TID
     Route: 048
  4. MULTI-VITAMINS [Concomitant]
     Dosage: QD
  5. BISOPROLOL [Concomitant]
     Indication: HYPERTENSION
     Dosage: 2.5 MG, UNK
     Route: 048
  6. PROCYCLIDINE HYDROCHLORIDE 2MG TAB [Concomitant]
     Indication: EXTRAPYRAMIDAL DISORDER
     Dosage: 2.5 MG, BID
     Route: 048
  7. VALPROATE SODIUM [Concomitant]
     Indication: EPILEPSY
     Dosage: 1000 MG, BID
     Route: 048
  8. DIAZEPAM [Concomitant]
     Dosage: VARIABLE DOSE
     Route: 048

REACTIONS (11)
  - DEHYDRATION [None]
  - FLUID OVERLOAD [None]
  - GRAND MAL CONVULSION [None]
  - HAEMATEMESIS [None]
  - HYPONATRAEMIA [None]
  - IMPAIRED SELF-CARE [None]
  - LOWER RESPIRATORY TRACT INFECTION [None]
  - MALLORY-WEISS SYNDROME [None]
  - MENTAL IMPAIRMENT [None]
  - URINARY TRACT INFECTION [None]
  - VOMITING [None]
